FAERS Safety Report 24333120 (Version 2)
Quarter: 2024Q3

REPORT INFORMATION
  Report Type: Report from Study
  Country: US (occurrence: US)
  Receive Date: 20240918
  Receipt Date: 20240919
  Transmission Date: 20241016
  Serious: No
  Sender: SANDOZ
  Company Number: US-SANDOZ-SDZ2024US078701

PATIENT
  Age: 14 Year
  Sex: Male

DRUGS (12)
  1. OMNITROPE [Suspect]
     Active Substance: SOMATROPIN
     Dosage: 0.4 ML, QD
     Route: 058
     Dates: start: 20240916, end: 20240917
  2. OMNITROPE [Suspect]
     Active Substance: SOMATROPIN
     Dosage: 0.4 ML, QD
     Route: 058
     Dates: start: 20240916, end: 20240917
  3. OMNITROPE [Suspect]
     Active Substance: SOMATROPIN
     Dosage: 0.4 ML, QD
     Route: 058
     Dates: start: 20240916, end: 20240917
  4. OMNITROPE [Suspect]
     Active Substance: SOMATROPIN
     Dosage: 0.4 ML, QD
     Route: 058
     Dates: start: 20240916, end: 20240917
  5. OMNITROPE [Suspect]
     Active Substance: SOMATROPIN
     Dosage: 0.24 ML, QD
     Route: 058
  6. OMNITROPE [Suspect]
     Active Substance: SOMATROPIN
     Dosage: 0.24 ML, QD
     Route: 058
  7. OMNITROPE [Suspect]
     Active Substance: SOMATROPIN
     Dosage: 0.24 ML, QD
     Route: 058
  8. OMNITROPE [Suspect]
     Active Substance: SOMATROPIN
     Dosage: 0.24 ML, QD
     Route: 058
  9. OMNITROPE [Suspect]
     Active Substance: SOMATROPIN
     Indication: Short stature
     Dosage: 0.4 ML, QD (5 MG/ML)
     Route: 058
  10. OMNITROPE [Suspect]
     Active Substance: SOMATROPIN
     Indication: Short stature
     Dosage: 0.4 ML, QD (5 MG/ML)
     Route: 058
  11. OMNITROPE [Suspect]
     Active Substance: SOMATROPIN
     Indication: Short stature
     Dosage: 0.4 ML, QD (5 MG/ML)
     Route: 058
  12. OMNITROPE [Suspect]
     Active Substance: SOMATROPIN
     Indication: Short stature
     Dosage: 0.4 ML, QD (5 MG/ML)
     Route: 058

REACTIONS (4)
  - Injection site haemorrhage [Unknown]
  - Injection site pain [Unknown]
  - Product dose confusion [Unknown]
  - Off label use [Unknown]

NARRATIVE: CASE EVENT DATE: 20240916
